FAERS Safety Report 6648229-6 (Version None)
Quarter: 2010Q1

REPORT INFORMATION
  Report Type: 
  Country: None (occurrence: None)
  Receive Date: 20100318
  Receipt Date: 20100308
  Transmission Date: 20100710
  Serious: Yes (Hospitalization)
  Sender: FDA-Public Use
  Company Number: 1000012533

PATIENT
  Age: 63 Year
  Sex: Female

DRUGS (1)
  1. ESCITALOPRAM [Suspect]
     Indication: TENSION HEADACHE
     Dosage: 10 MG (10 MG, 1 IN 1 D), ORAL
     Route: 048
     Dates: start: 20091203, end: 20091210

REACTIONS (4)
  - ANXIETY [None]
  - DEPRESSION SUICIDAL [None]
  - OFF LABEL USE [None]
  - PANIC REACTION [None]
